FAERS Safety Report 8470982-X (Version None)
Quarter: 2012Q2

REPORT INFORMATION
  Report Type: 
  Country: None (occurrence: None)
  Receive Date: 20120323
  Receipt Date: 20110823
  Transmission Date: 20120825
  Serious: No
  Sender: FDA-Public Use
  Company Number: 163-21880-11082870

PATIENT
  Age: 86 Year
  Sex: Male

DRUGS (6)
  1. LEVOBUNOLOL (LEVOBUNOLOL) [Concomitant]
  2. LENALIDOMIDE [Suspect]
     Indication: MULTIPLE MYELOMA
     Dosage: 5;10 MG, QD 21/28 DAYS, PO
     Route: 048
     Dates: start: 20090801
  3. LENALIDOMIDE [Suspect]
     Indication: MULTIPLE MYELOMA
     Dosage: 5;10 MG, QD 21/28 DAYS, PO
     Route: 048
     Dates: start: 20100701, end: 20110819
  4. FLOMAX [Concomitant]
  5. K-TAB [Concomitant]
  6. LASIX [Concomitant]

REACTIONS (1)
  - NEUTROPENIA [None]
